FAERS Safety Report 24079751 (Version 1)
Quarter: 2024Q3

REPORT INFORMATION
  Report Type: Spontaneous
  Country: US (occurrence: US)
  Receive Date: 20240711
  Receipt Date: 20240711
  Transmission Date: 20241016
  Serious: No
  Sender: TEVA
  Company Number: US-TEVA-VS-3217085

PATIENT

DRUGS (1)
  1. TERIPARATIDE [Suspect]
     Active Substance: TERIPARATIDE
     Indication: Product used for unknown indication
     Dosage: STRENGTH: 600 MCG / 2.4 ML
     Route: 065

REACTIONS (4)
  - Nausea [Unknown]
  - Product contamination [Unknown]
  - Product dose omission issue [Unknown]
  - Dizziness [Unknown]
